FAERS Safety Report 6749050-0 (Version None)
Quarter: 2010Q2

REPORT INFORMATION
  Report Type: 
  Country: None (occurrence: None)
  Receive Date: 20100601
  Receipt Date: 20100429
  Transmission Date: 20101027
  Serious: No
  Sender: FDA-Public Use
  Company Number: US-BAYER-201015070BCC

PATIENT
  Age: 25 Year
  Sex: Male

DRUGS (1)
  1. DESONATE [Suspect]
     Indication: DERMATITIS ATOPIC
     Route: 061
     Dates: start: 20100426, end: 20100401

REACTIONS (2)
  - DERMATITIS [None]
  - DRY SKIN [None]
